FAERS Safety Report 10657051 (Version 1)
Quarter: 2014Q4

REPORT INFORMATION
  Report Type: Spontaneous
  Country: DE (occurrence: None)
  Receive Date: 20141215
  Receipt Date: 20141215
  Transmission Date: 20150529
  Serious: Yes (Congenital Anomaly)
  Sender: FDA-Public Use
  Company Number: DE2014019513

PATIENT
  Sex: Female
  Weight: 3.28 kg

DRUGS (2)
  1. PAROXETIN (PAROXETINE HYDROCHLORIDE) UNKNOWN [Suspect]
     Active Substance: PAROXETINE HYDROCHLORIDE
     Indication: DEPRESSION
     Route: 064
     Dates: start: 20130926, end: 20140623
  2. FEMBION (MINERALS NOS + VIATAMINS NOS) [Concomitant]

REACTIONS (2)
  - Congenital hydronephrosis [None]
  - Maternal drugs affecting foetus [None]
